FAERS Safety Report 11985136 (Version 1)
Quarter: 2016Q1

REPORT INFORMATION
  Report Type: Spontaneous
  Country: JP (occurrence: JP)
  Receive Date: 20160201
  Receipt Date: 20160201
  Transmission Date: 20160526
  Serious: Yes (Hospitalization)
  Sender: FDA-Public Use
  Company Number: JP-ELI_LILLY_AND_COMPANY-JP201512004001

PATIENT
  Age: 65 Year
  Sex: Male
  Weight: 57 kg

DRUGS (7)
  1. CISPLATIN. [Suspect]
     Active Substance: CISPLATIN
     Indication: LUNG ADENOCARCINOMA STAGE IV
     Dosage: 120 MG, OTHER
     Route: 042
     Dates: start: 20151120
  2. ALIMTA [Suspect]
     Active Substance: PEMETREXED DISODIUM
     Indication: LUNG ADENOCARCINOMA STAGE IV
     Dosage: 800 MG, OTHER
     Route: 042
     Dates: start: 20151120
  3. DECADRAN                           /00016001/ [Concomitant]
     Active Substance: DEXAMETHASONE
     Indication: PROPHYLAXIS
     Dosage: UNK, OTHER
     Route: 048
     Dates: start: 20151121
  4. PANVITAN                           /05664301/ [Concomitant]
     Indication: PROPHYLAXIS
     Dosage: 1 G, QD
     Route: 048
     Dates: start: 20151112
  5. MENILET                            /00586301/ [Concomitant]
     Indication: PROPHYLAXIS
     Dosage: 20 G, TID
     Route: 048
     Dates: start: 20151111
  6. EMEND [Concomitant]
     Active Substance: APREPITANT
     Indication: PROPHYLAXIS
     Dosage: UNK UNK, OTHER
     Route: 048
     Dates: start: 20151120
  7. METHYCOBAL [Concomitant]
     Active Substance: METHYLCOBALAMIN
     Indication: PROPHYLAXIS
     Dosage: 500 UG, BID
     Route: 030
     Dates: start: 20151112

REACTIONS (2)
  - Oesophagitis [Recovering/Resolving]
  - Duodenitis [Recovering/Resolving]

NARRATIVE: CASE EVENT DATE: 20151124
